FAERS Safety Report 21234765 (Version 1)
Quarter: 2022Q3

REPORT INFORMATION
  Report Type: Spontaneous
  Country: CA (occurrence: CA)
  Receive Date: 20220820
  Receipt Date: 20220820
  Transmission Date: 20221027
  Serious: Yes (Hospitalization)
  Sender: FDA-Public Use
  Company Number: CA-BAYER-2022A105652

PATIENT
  Age: 78 Year
  Sex: Female

DRUGS (10)
  1. XARELTO [Suspect]
     Active Substance: RIVAROXABAN
     Indication: Product used for unknown indication
     Dosage: UNK
     Route: 048
  2. VITAMIN B COMPLEX [Concomitant]
     Active Substance: CYANOCOBALAMIN\DEXPANTHENOL\NIACINAMIDE\PYRIDOXINE HYDROCHLORIDE\RIBOFLAVIN 5^-PHOSPHATE SODIUM\THIA
     Dosage: UNK
  3. PERINDOPRIL [Concomitant]
     Active Substance: PERINDOPRIL
     Dosage: UNK
  4. AMLODIPINE [Concomitant]
     Active Substance: AMLODIPINE BESYLATE
     Dosage: UNK
  5. ROSUVASTATIN [Concomitant]
     Active Substance: ROSUVASTATIN
     Dosage: UNK
  6. COD LIVER OIL;VITAMINS NOS [Concomitant]
     Dosage: UNK
  7. UBIQUINOL [Concomitant]
     Active Substance: UBIQUINOL
     Dosage: UNK
  8. QUERCETIN [Concomitant]
     Active Substance: QUERCETIN
     Dosage: UNK
  9. DIETARY SUPPLEMENT\RESVERATROL [Concomitant]
     Active Substance: DIETARY SUPPLEMENT\RESVERATROL
     Dosage: UNK
  10. BISOPROLOL [Concomitant]
     Active Substance: BISOPROLOL
     Dosage: UNK

REACTIONS (5)
  - Asthenia [Unknown]
  - Dyspnoea [Unknown]
  - Haematuria [Unknown]
  - Faeces discoloured [Unknown]
  - Anaemia [Unknown]
